FAERS Safety Report 9284615 (Version 1)
Quarter: 2013Q2

REPORT INFORMATION
  Report Type: Spontaneous
  Country: US (occurrence: US)
  Receive Date: 20130513
  Receipt Date: 20130513
  Transmission Date: 20140414
  Serious: No
  Sender: FDA-Public Use
  Company Number: US-ASTRAZENECA-2013SE21236

PATIENT
  Age: 27167 Day
  Sex: Female
  Weight: 90.7 kg

DRUGS (7)
  1. SYMBICORT [Suspect]
     Indication: ASTHMA
     Dosage: 2 PUFFS TWO TIMES A DAY
     Route: 055
     Dates: start: 20130324
  2. TUDORZA [Concomitant]
     Indication: ASTHMA
     Dosage: 1 PUFF TWO TIMES A DAY
     Route: 055
     Dates: start: 20130324
  3. VENTOLIN [Concomitant]
     Indication: ASTHMA
     Dosage: AS REQUIRED
     Route: 055
     Dates: start: 20130324
  4. CORDOVAL [Concomitant]
     Indication: BLOOD PRESSURE ABNORMAL
     Dosage: DAILY
     Route: 048
  5. MONTELUKAST [Concomitant]
     Indication: DYSPNOEA
     Route: 048
     Dates: start: 20130324
  6. DIURETIC [Concomitant]
  7. COMBIVENT [Concomitant]

REACTIONS (1)
  - Hypogeusia [Not Recovered/Not Resolved]
